FAERS Safety Report 8919430 (Version 1)
Quarter: 2012Q4

REPORT INFORMATION
  Report Type: 
  Country: US (occurrence: US)
  Receive Date: 20121121
  Receipt Date: 20121121
  Transmission Date: 20130627
  Serious: No
  Sender: FDA-Public Use
  Company Number: US-PFIZER INC-2012291102

PATIENT
  Age: 64 Year
  Sex: Male
  Weight: 122 kg

DRUGS (5)
  1. LIPITOR [Suspect]
     Indication: BLOOD PRESSURE HIGH
     Dosage: 40 mg, daily
     Dates: start: 2006
  2. LANTUS [Concomitant]
     Indication: DIABETES
     Dosage: 90 IU, daily
  3. HUMALOG [Concomitant]
     Indication: DIABETES
     Dosage: 5 units to 20 units, UNK
  4. CARDURA [Concomitant]
     Indication: CONGESTIVE HEART FAILURE
     Dosage: 4 mg, daily
  5. METFORMIN [Concomitant]
     Indication: DIABETES
     Dosage: 1000 mg, daily

REACTIONS (2)
  - Off label use [Unknown]
  - Drug ineffective for unapproved indication [Unknown]
